FAERS Safety Report 7464229-0 (Version None)
Quarter: 2011Q2

REPORT INFORMATION
  Report Type: 
  Country: None (occurrence: None)
  Receive Date: 20110506
  Receipt Date: 20110502
  Transmission Date: 20111010
  Serious: Yes (Death)
  Sender: FDA-Public Use
  Company Number: US-ASTRAZENECA-2011SE20150

PATIENT
  Age: 54 Year
  Sex: Female
  Weight: 80.5 kg

DRUGS (11)
  1. SEROQUEL [Suspect]
     Indication: BIPOLAR I DISORDER
     Route: 048
     Dates: start: 20050922
  2. LEXAPRO [Concomitant]
     Indication: DEPRESSION
     Route: 048
     Dates: start: 20100824, end: 20110211
  3. SEROQUEL [Suspect]
     Route: 048
     Dates: start: 20100929
  4. LORAZEPAM [Concomitant]
     Indication: ANXIETY
     Route: 048
     Dates: start: 20101116, end: 20110211
  5. SEROQUEL [Suspect]
     Indication: DEPRESSION
     Route: 048
     Dates: start: 20050922
  6. SEROQUEL [Suspect]
     Indication: ANXIETY
     Route: 048
     Dates: start: 20050922
  7. SEROQUEL [Suspect]
     Dosage: 400-800 MG DAILY
     Route: 048
     Dates: start: 20080310, end: 20100831
  8. SEROQUEL [Suspect]
     Dosage: 400-800 MG DAILY
     Route: 048
     Dates: start: 20080310, end: 20100831
  9. SEROQUEL [Suspect]
     Dosage: 400-800 MG DAILY
     Route: 048
     Dates: start: 20080310, end: 20100831
  10. SEROQUEL [Suspect]
     Route: 048
     Dates: start: 20100929
  11. SEROQUEL [Suspect]
     Route: 048
     Dates: start: 20100929

REACTIONS (1)
  - CEREBROVASCULAR ACCIDENT [None]
